FAERS Safety Report 4371387-3 (Version None)
Quarter: 2004Q2

REPORT INFORMATION
  Report Type: 
  Country: None (occurrence: None)
  Receive Date: 20040607
  Receipt Date: 20040528
  Transmission Date: 20050107
  Serious: Yes (Death)
  Sender: FDA-Public Use
  Company Number: PHBS2004JP07025

PATIENT
  Age: 68 Year
  Sex: Male

DRUGS (2)
  1. CYCLOSPORINE [Suspect]
     Indication: APLASTIC ANAEMIA
     Dosage: 150 MG/D
     Route: 048
  2. ATG [Suspect]
     Indication: APLASTIC ANAEMIA
     Dosage: 15 MG/KG/D
     Route: 048

REACTIONS (1)
  - LUNG ADENOCARCINOMA [None]
